FAERS Safety Report 24806191 (Version 1)
Quarter: 2025Q1

REPORT INFORMATION
  Report Type: Spontaneous
  Country: MX (occurrence: MX)
  Receive Date: 20250103
  Receipt Date: 20250103
  Transmission Date: 20250409
  Serious: Yes (Other)
  Sender: ALEXION PHARMACEUTICALS
  Company Number: MX-ASTRAZENECA-202412MEX026230MX

PATIENT

DRUGS (4)
  1. TAGRISSO [Suspect]
     Active Substance: OSIMERTINIB
  2. TAGRISSO [Suspect]
     Active Substance: OSIMERTINIB
     Route: 048
  3. TAGRISSO [Suspect]
     Active Substance: OSIMERTINIB
  4. TAGRISSO [Suspect]
     Active Substance: OSIMERTINIB
     Route: 048

REACTIONS (3)
  - Malignant neoplasm progression [Unknown]
  - Suspected counterfeit product [Unknown]
  - Counterfeit product administered [Unknown]
